FAERS Safety Report 7595162-1 (Version None)
Quarter: 2011Q3

REPORT INFORMATION
  Report Type: 
  Country: None (occurrence: None)
  Receive Date: 20110707
  Receipt Date: 20110623
  Transmission Date: 20111222
  Serious: No
  Sender: FDA-Public Use
  Company Number: US-B.I. PHARMACEUTICALS,INC./RIDGEFIELD-2011-BP-16257BP

PATIENT
  Sex: Male

DRUGS (5)
  1. LORAZEPAM [Concomitant]
     Dosage: 1 MG
  2. DILTIAZEM [Concomitant]
     Indication: ATRIAL FIBRILLATION
     Dosage: 180 MG
  3. LISINOPRIL [Concomitant]
     Indication: ATRIAL FIBRILLATION
     Dosage: 10 MG
  4. PRADAXA [Suspect]
     Indication: ATRIAL FIBRILLATION
     Dosage: 300 MG
     Route: 048
     Dates: start: 20110607
  5. M.V.I. [Concomitant]
     Indication: SUPPLEMENTATION THERAPY

REACTIONS (1)
  - GOUT [None]
